FAERS Safety Report 8191281-X (Version None)
Quarter: 2012Q1

REPORT INFORMATION
  Report Type: 
  Country: None (occurrence: None)
  Receive Date: 20120307
  Receipt Date: 20120301
  Transmission Date: 20120608
  Serious: Yes (Hospitalization, Congenital Anomaly)
  Sender: FDA-Public Use
  Company Number: GXKR2012DE000993

PATIENT

DRUGS (4)
  1. METFORMIN HYDROCHLORIDE [Suspect]
     Dosage: MATERNAL DOSE: 1000 MG, BID (UNTIL GW 23)
     Route: 064
  2. LEVOTHYROXINE SODIUM [Concomitant]
     Dosage: MATERNAL DOSE: 50 UG/DAY
     Route: 064
  3. LEVOTHYROXINE SODIUM [Concomitant]
     Dosage: MATERNAL DOSE: 100 UG/DAY
     Route: 064
  4. DEKRISTOL [Concomitant]
     Dosage: MATERNAL DOSE: ONCE EVERY 14 DAYS (UNTIL GW 23)
     Route: 064

REACTIONS (3)
  - OVARIAN CYST [None]
  - FOETAL EXPOSURE DURING PREGNANCY [None]
  - MATERNAL DRUGS AFFECTING FOETUS [None]
